FAERS Safety Report 7290868-6 (Version None)
Quarter: 2011Q1

REPORT INFORMATION
  Report Type: 
  Country: None (occurrence: None)
  Receive Date: 20110214
  Receipt Date: 20110131
  Transmission Date: 20110831
  Serious: Yes (Hospitalization, Other)
  Sender: FDA-Public Use
  Company Number: US-BAYER-201024144NA

PATIENT
  Sex: Female

DRUGS (2)
  1. BETASERON [Suspect]
     Indication: MULTIPLE SCLEROSIS
     Dosage: 8 MIU, QOD
     Route: 058
     Dates: start: 20070927, end: 20101111
  2. ANTIBIOTIC EAR [Interacting]
     Indication: EAR INFECTION
     Dosage: UNK
     Dates: start: 20010201

REACTIONS (5)
  - EAR INFECTION [None]
  - ABSCESS [None]
  - HYPOAESTHESIA [None]
  - PERONEAL NERVE PALSY [None]
  - PAIN IN EXTREMITY [None]
